FAERS Safety Report 18055232 (Version 1)
Quarter: 2020Q3

REPORT INFORMATION
  Report Type: Report from Study
  Country: CA (occurrence: CA)
  Receive Date: 20200722
  Receipt Date: 20200722
  Transmission Date: 20201103
  Serious: Yes (Hospitalization)
  Sender: FDA-Public Use
  Company Number: CA-BIOGEN-2020BI00878559

PATIENT
  Age: 4 Month
  Sex: Female

DRUGS (3)
  1. SPINRAZA [Suspect]
     Active Substance: NUSINERSEN
     Indication: SPINAL MUSCULAR ATROPHY
     Dosage: 12MG/5ML DAYS 0, 14, 28, 58, THEN EVERY 4 MONTHS THEREAFTER
     Route: 037
     Dates: start: 20191011
  2. OMEPRAZOLE. [Concomitant]
     Active Substance: OMEPRAZOLE
     Indication: PRODUCT USED FOR UNKNOWN INDICATION
     Route: 065
  3. CHOLECALCIFEROL [Concomitant]
     Active Substance: CHOLECALCIFEROL
     Indication: PRODUCT USED FOR UNKNOWN INDICATION
     Route: 065

REACTIONS (7)
  - Respiratory syncytial virus test positive [Recovered/Resolved]
  - Vomiting [Unknown]
  - Enterovirus test positive [Recovered/Resolved]
  - Scoliosis [Not Recovered/Not Resolved]
  - Bronchiolitis [Recovered/Resolved]
  - Respiratory tract infection viral [Unknown]
  - Aspiration [Unknown]

NARRATIVE: CASE EVENT DATE: 202001
